FAERS Safety Report 4991273-5 (Version None)
Quarter: 2006Q2

REPORT INFORMATION
  Report Type: 
  Country: None (occurrence: None)
  Receive Date: 20060428
  Receipt Date: 20060418
  Transmission Date: 20061013
  Serious: Yes (Other)
  Sender: FDA-Public Use
  Company Number: 2006040662

PATIENT
  Age: 60 Year
  Sex: Female
  Weight: 72.5755 kg

DRUGS (7)
  1. LIPITOR [Suspect]
     Indication: BLOOD CHOLESTEROL INCREASED
     Dosage: 10 MG (10 MG, 1 IN 1 D), ORAL
     Route: 048
  2. DIOVAN HCT [Concomitant]
  3. NEXIUM [Concomitant]
  4. POTASSIUM (POTASSIUM) [Concomitant]
  5. ZOLOFT [Concomitant]
  6. OXYBUTYNIN CHLORIDE [Concomitant]
  7. REGLAN [Concomitant]

REACTIONS (5)
  - BODY HEIGHT DECREASED [None]
  - CONSTIPATION [None]
  - FLATULENCE [None]
  - HYPOTHYROIDISM [None]
  - OSTEOPOROSIS [None]
